FAERS Safety Report 8931864 (Version 1)
Quarter: 2012Q4

REPORT INFORMATION
  Report Type: 
  Country: US (occurrence: US)
  Receive Date: 20121128
  Receipt Date: 20121128
  Transmission Date: 20130627
  Serious: Yes (Other)
  Sender: FDA-Public Use
  Company Number: US-PFIZER INC-2012297504

PATIENT
  Age: 46 Year
  Sex: Male
  Weight: 127 kg

DRUGS (16)
  1. CHANTIX [Suspect]
     Indication: SMOKING CESSATION THERAPY
     Dosage: 0.5 mg, daily
     Route: 048
     Dates: start: 2008, end: 2008
  2. CHANTIX [Suspect]
     Dosage: 0.5 mg, daily
     Route: 048
     Dates: start: 2009
  3. GLIPIZIDE [Suspect]
     Indication: TYPE II DIABETES MELLITUS
     Dosage: 10 mg, daily
     Dates: end: 2012
  4. JANUMET [Suspect]
     Indication: TYPE II DIABETES MELLITUS
     Dosage: 1000/50 mg, 2x/day
     Route: 048
     Dates: end: 2012
  5. METOPROLOL [Concomitant]
     Indication: BLOOD PRESSURE HIGH
     Dosage: 25 mg, daily
  6. LISINOPRIL [Concomitant]
     Indication: BLOOD PRESSURE HIGH
     Dosage: 20 mg, daily
  7. OXYCODONE [Concomitant]
     Indication: BACK DISORDER
     Dosage: 15 mg, every 4 hrs
     Route: 048
  8. OXYCODONE [Concomitant]
     Indication: NECK DISCOMFORT
  9. OXYCODONE [Concomitant]
     Indication: JOINT DISORDER
  10. VITAMIN D [Concomitant]
     Dosage: ^14 IU^, daily
  11. FISH OIL [Concomitant]
     Dosage: 1200 IU, daily
  12. ASPIRIN ^BAYER^ [Concomitant]
     Dosage: UNK, daily
  13. ONE-A-DAY [Concomitant]
     Dosage: UNK, daily
  14. SIMVASTATIN [Concomitant]
     Indication: HIGH CHOLESTEROL
     Dosage: UNK
     Dates: end: 2012
  15. CYCLOBENZAPRINE [Concomitant]
     Dosage: 10 mg, daily
  16. TESTOSTERONE [Concomitant]
     Indication: BLOOD TESTOSTERONE DECREASED
     Dosage: UNK

REACTIONS (3)
  - Type 2 diabetes mellitus [Unknown]
  - Surgery [Unknown]
  - Drug ineffective [Unknown]
